FAERS Safety Report 5286919-0 (Version None)
Quarter: 2007Q1

REPORT INFORMATION
  Report Type: 
  Country: None (occurrence: None)
  Receive Date: 20070329
  Receipt Date: 20070313
  Transmission Date: 20070707
  Serious: Yes (Other)
  Sender: FDA-Public Use
  Company Number: 230009M07DEU

PATIENT
  Age: 47 Year
  Sex: Female
  Weight: 69 kg

DRUGS (3)
  1. REBIF [Suspect]
     Indication: MULTIPLE SCLEROSIS
     Dosage: 22 MCG, 3 IN 1 WEEKS, SUBCUTANEOUS
     Route: 058
     Dates: start: 20070228, end: 20070307
  2. FLUOXETINE HYDROCHLORIDE [Concomitant]
  3. IBUPROFEN [Concomitant]

REACTIONS (2)
  - ANGIOEDEMA [None]
  - ECZEMA [None]
